FAERS Safety Report 14387788 (Version 1)
Quarter: 2018Q1

REPORT INFORMATION
  Report Type: Spontaneous
  Country: US (occurrence: US)
  Receive Date: 20180115
  Receipt Date: 20180115
  Transmission Date: 20180509
  Serious: Yes (Other)
  Sender: FDA-Public Use
  Company Number: US-SA-2017SA189713

PATIENT
  Age: 52 Year
  Sex: Female
  Weight: 73.48 kg

DRUGS (7)
  1. ADRIAMYCIN [Concomitant]
     Active Substance: DOXORUBICIN HYDROCHLORIDE
  2. LEVOTHYROXINE. [Concomitant]
     Active Substance: LEVOTHYROXINE
  3. TAXOL [Concomitant]
     Active Substance: PACLITAXEL
  4. TAXOTERE [Suspect]
     Active Substance: DOCETAXEL
     Indication: INVASIVE DUCTAL BREAST CARCINOMA
     Dosage: FREQUENCY: 3 DOSES WITH 3 MONTHS IN BETWEEN 1 AND 2?DOSE: 140 - 180 MG
     Route: 051
     Dates: start: 20080623, end: 20080623
  5. TAXOTERE [Suspect]
     Active Substance: DOCETAXEL
     Indication: INVASIVE DUCTAL BREAST CARCINOMA
     Dosage: FREQUENCY: 3 DOSES WITH 3 MONTHS IN BETWEEN 1 AND 2?DOSE: 140 - 180 MG
     Route: 051
     Dates: start: 20080314, end: 20080314
  6. NEOSAR [Concomitant]
     Active Substance: CYCLOPHOSPHAMIDE
  7. DOXIL [Concomitant]
     Active Substance: DOXORUBICIN HYDROCHLORIDE

REACTIONS (2)
  - Alopecia [Not Recovered/Not Resolved]
  - Psychological trauma [Unknown]

NARRATIVE: CASE EVENT DATE: 200806
